FAERS Safety Report 17582113 (Version 2)
Quarter: 2020Q2

REPORT INFORMATION
  Report Type: Spontaneous
  Country: DE (occurrence: DE)
  Receive Date: 20200325
  Receipt Date: 20200618
  Transmission Date: 20200713
  Serious: Yes (Other)
  Sender: FDA-Public Use
  Company Number: NVSC2020DE083827

PATIENT
  Age: 49 Year
  Sex: Male

DRUGS (8)
  1. MIRTAZAPINE. [Suspect]
     Active Substance: MIRTAZAPINE
     Indication: ANTIDEPRESSANT THERAPY
     Dosage: 30 MG, QD
     Route: 065
  2. MIRTAZAPINE. [Suspect]
     Active Substance: MIRTAZAPINE
     Indication: MAJOR DEPRESSION
  3. QUETIAPINE. [Suspect]
     Active Substance: QUETIAPINE
     Indication: MAJOR DEPRESSION
  4. PIPAMPERONE [Suspect]
     Active Substance: PIPAMPERONE
     Indication: PSYCHOTIC DISORDER
     Dosage: 40 MG, QD
     Route: 065
  5. PIPAMPERONE [Suspect]
     Active Substance: PIPAMPERONE
     Indication: MAJOR DEPRESSION
  6. VOLTAREN [Concomitant]
     Active Substance: DICLOFENAC SODIUM
     Indication: PRODUCT USED FOR UNKNOWN INDICATION
     Dosage: UNK
     Route: 065
  7. QUETIAPINE. [Suspect]
     Active Substance: QUETIAPINE
     Indication: PSYCHOTIC DISORDER
     Dosage: 50 MG, QD
     Route: 065
  8. CHOLECALCIFEROL [Concomitant]
     Active Substance: CHOLECALCIFEROL
     Indication: PRODUCT USED FOR UNKNOWN INDICATION
     Dosage: UNK
     Route: 065

REACTIONS (1)
  - Drug-induced liver injury [Recovered/Resolved]
